FAERS Safety Report 14263862 (Version 2)
Quarter: 2017Q4

REPORT INFORMATION
  Report Type: Other
  Country: None (occurrence: GB)
  Receive Date: 20171208
  Receipt Date: 20171211
  Transmission Date: 20180321
  Serious: Yes (Hospitalization)
  Sender: FDA-Public Use
  Company Number: GB-MERZ NORTH AMERICA, INC.-17MRZ-00386

PATIENT
  Age: 29 Year
  Sex: Female

DRUGS (6)
  1. ASCLERA [Suspect]
     Active Substance: POLIDOCANOL
     Indication: SCLEROTHERAPY
     Dosage: UNKNOWN DOSE
     Route: 042
  2. DIOSMIN [Concomitant]
     Active Substance: DIOSMIN
     Indication: PERIPHERAL VENOUS DISEASE
     Dosage: UNKNOWN DOSE
     Route: 048
  3. RUTINAC FORTE [Suspect]
     Active Substance: ASCORBIC ACID\RUTOSIDE TRIHYDRATE
     Indication: PERIPHERAL VENOUS DISEASE
     Dosage: UNK DOSE
     Route: 048
  4. YASMIN [Interacting]
     Active Substance: DROSPIRENONE\ETHINYL ESTRADIOL
     Indication: PRODUCT USED FOR UNKNOWN INDICATION
     Dosage: UNKNOWN DOSE
     Route: 048
  5. ASCORBIC ACID. [Suspect]
     Active Substance: ASCORBIC ACID
     Indication: PERIPHERAL VENOUS DISEASE
     Dosage: 1100 MG
     Route: 048
  6. MICROGYNON [Interacting]
     Active Substance: ETHINYL ESTRADIOL\LEVONORGESTREL ACETATE
     Indication: PRODUCT USED FOR UNKNOWN INDICATION
     Dosage: UNK DOSE
     Route: 048

REACTIONS (7)
  - Overdose [Recovered/Resolved]
  - Gastritis [Recovered/Resolved]
  - Drug interaction [Recovered/Resolved]
  - Microangiopathic haemolytic anaemia [Recovered/Resolved]
  - Oxalosis [Recovered/Resolved]
  - Acute kidney injury [Recovered/Resolved]
  - Tubulointerstitial nephritis [Recovered/Resolved]
